FAERS Safety Report 14074026 (Version 2)
Quarter: 2017Q4

REPORT INFORMATION
  Report Type: Spontaneous
  Country: CA (occurrence: US)
  Receive Date: 20171010
  Receipt Date: 20171129
  Transmission Date: 20180321
  Serious: No
  Sender: FDA-Public Use
  Company Number: CA-JNJFOC-20170924459

PATIENT
  Sex: Female

DRUGS (1)
  1. TYLENOL EXTRA STRENGTH [Suspect]
     Active Substance: ACETAMINOPHEN
     Indication: HEADACHE
     Dosage: 1-2 TABLETS OCCASIONALLY AS NEEDED
     Route: 048
     Dates: end: 20170918

REACTIONS (3)
  - Suspected product contamination [Unknown]
  - Expired product administered [Unknown]
  - Inappropriate schedule of drug administration [Unknown]
